FAERS Safety Report 24700881 (Version 1)
Quarter: 2024Q4

REPORT INFORMATION
  Report Type: Spontaneous
  Country: IT (occurrence: IT)
  Receive Date: 20241205
  Receipt Date: 20241205
  Transmission Date: 20250115
  Serious: Yes (Other)
  Sender: TEVA
  Company Number: IT-TEVA-VS-3270152

PATIENT
  Age: 15 Year
  Sex: Female

DRUGS (4)
  1. MYCOPHENOLATE MOFETIL [Suspect]
     Active Substance: MYCOPHENOLATE MOFETIL
     Indication: Pemphigus
     Route: 065
  2. RITUXIMAB [Concomitant]
     Active Substance: RITUXIMAB
     Indication: Pemphigus
     Dosage: ADMINISTERED TWICE, 15 DAYS APART
     Route: 065
  3. CHLORPHENIRAMINE [Concomitant]
     Active Substance: CHLORPHENIRAMINE
     Indication: Prophylaxis
     Route: 030
  4. HYDROCORTISONE [Concomitant]
     Active Substance: HYDROCORTISONE
     Indication: Prophylaxis
     Route: 042

REACTIONS (3)
  - Cushingoid [Unknown]
  - Osteopenia [Unknown]
  - Gastrointestinal disorder [Unknown]
